FAERS Safety Report 7201393-2 (Version None)
Quarter: 2010Q4

REPORT INFORMATION
  Report Type: 
  Country: None (occurrence: None)
  Receive Date: 20101216
  Receipt Date: 20101210
  Transmission Date: 20110411
  Serious: Yes (Other)
  Sender: FDA-Public Use
  Company Number: 2010SP064289

PATIENT
  Age: 60 Year
  Sex: Male

DRUGS (1)
  1. CELESTAMINE TAB [Suspect]
     Indication: PRODUCT USED FOR UNKNOWN INDICATION
     Dosage: PO
     Route: 048
     Dates: start: 20080101

REACTIONS (3)
  - DISEASE RECURRENCE [None]
  - HEPATITIS B VIRUS TEST POSITIVE [None]
  - HEPATITIS FULMINANT [None]
